FAERS Safety Report 16808881 (Version 1)
Quarter: 2019Q3

REPORT INFORMATION
  Report Type: Other
  Country: DE (occurrence: DE)
  Receive Date: 20190916
  Receipt Date: 20190916
  Transmission Date: 20191005
  Serious: Yes (Hospitalization)
  Sender: FDA-Public Use
  Company Number: DE-EMCURE PHARMACEUTICALS LTD-2018-EPL-0461

PATIENT
  Age: 65 Year
  Sex: Male
  Weight: 104 kg

DRUGS (23)
  1. INNOHEP [Concomitant]
     Active Substance: TINZAPARIN SODIUM
     Dosage: 0.7 MILLILITER
     Route: 058
  2. FENTANYL. [Concomitant]
     Active Substance: FENTANYL
     Dosage: 25 MICROGRAM EVERY DAY
  3. VICTOZA [Concomitant]
     Active Substance: LIRAGLUTIDE
     Dosage: 1.2 MILLIGRAM EVERY DAY
     Route: 058
  4. BELOC ZOK [Concomitant]
     Active Substance: METOPROLOL SUCCINATE
     Indication: HYPERTENSION
     Dosage: 142.5 MILLIGRAM
     Route: 048
     Dates: start: 20130919
  5. PANTENOL [Concomitant]
     Dosage: DAILY MOUTHWASH
  6. INSULIN [Concomitant]
     Active Substance: INSULIN NOS
     Dosage: UNK
  7. TOREM                              /01036501/ [Concomitant]
     Active Substance: TORSEMIDE
     Dosage: 50 MILLIGRAM EVERY DAY
  8. ACETYLSALICYLIC ACID [Concomitant]
     Active Substance: ASPIRIN
     Dosage: 100 MILLIGRAM EVERY DAY
  9. RAMIPRIL. [Concomitant]
     Active Substance: RAMIPRIL
     Indication: HYPERTENSION
     Dosage: 2.5 MILLIGRAM
     Route: 048
     Dates: start: 20130919
  10. XELODA [Suspect]
     Active Substance: CAPECITABINE
     Indication: COLORECTAL CANCER METASTATIC
     Dosage: 1650 MILLIGRAM, DAILY (3300 TO 2500 MG)
     Route: 048
     Dates: start: 20130919, end: 20131003
  11. LEVEMIR [Concomitant]
     Active Substance: INSULIN DETEMIR
     Dosage: 24 INTERNATIONAL UNIT
     Route: 058
  12. IRINOTECAN HYDROCHLORIDE. [Suspect]
     Active Substance: IRINOTECAN HYDROCHLORIDE
     Indication: COLORECTAL CANCER METASTATIC
     Dosage: 422 MILLIGRAM EVERY THREE WEEK
     Route: 042
     Dates: start: 20130919, end: 20131010
  13. PANTOZOL [Concomitant]
     Active Substance: PANTOPRAZOLE SODIUM
     Dosage: 40 MILLIGRAM, BID (80 MG EVERY DAY)
     Route: 042
  14. SPIRONOLACTONE. [Concomitant]
     Active Substance: SPIRONOLACTONE
     Dosage: 50 MILLIGRAM EVERY DAY
     Route: 065
  15. LEVEMIR [Concomitant]
     Active Substance: INSULIN DETEMIR
     Dosage: 10 INTERNATIONAL UNIT
     Route: 058
  16. PANTOZOL [Concomitant]
     Active Substance: PANTOPRAZOLE SODIUM
     Dosage: 40 MILLIGRAM EVERY DAY
  17. GLIBENCLAMID [Concomitant]
     Active Substance: GLYBURIDE
     Indication: DIABETES MELLITUS
     Dosage: 2 MILLIGRAM
     Route: 048
  18. TEPILTA                            /00115701/ [Concomitant]
     Dosage: 1 DOSAGE FORM DAILY
  19. AVASTIN [Suspect]
     Active Substance: BEVACIZUMAB
     Indication: COLORECTAL CANCER METASTATIC
     Dosage: 773 MILLIGRAM EVERY 3 WEEK
     Route: 042
     Dates: start: 20130919, end: 20131010
  20. AMARYL [Concomitant]
     Active Substance: GLIMEPIRIDE
     Dosage: 2 MILLIGRAM
  21. METOHEXAL                          /00376902/ [Concomitant]
     Active Substance: METOPROLOL SUCCINATE
     Dosage: 47.5 MILLIGRAM EVERY DAY
  22. FUROSEMIDE. [Concomitant]
     Active Substance: FUROSEMIDE
     Dosage: 40 MILLIGRAM
  23. DIGITOXIN [Concomitant]
     Active Substance: DIGITOXIN
     Dosage: DAILY

REACTIONS (7)
  - Hyperkalaemia [Recovered/Resolved]
  - Pancytopenia [Recovered/Resolved]
  - Acute kidney injury [Recovered/Resolved]
  - Diarrhoea [Recovered/Resolved]
  - Stomatitis [Recovered/Resolved]
  - General physical health deterioration [Recovered/Resolved]
  - Dysphagia [Recovered/Resolved]

NARRATIVE: CASE EVENT DATE: 201310
